FAERS Safety Report 8975418 (Version 2)
Quarter: 2012Q4

REPORT INFORMATION
  Report Type: 
  Country: US (occurrence: US)
  Receive Date: 20121219
  Receipt Date: 20121226
  Transmission Date: 20130627
  Serious: Yes (Hospitalization)
  Sender: FDA-Public Use
  Company Number: US-AMGEN-USASP2012074762

PATIENT
  Age: 66 Year
  Sex: Male

DRUGS (2)
  1. XGEVA [Suspect]
     Indication: LUNG NEOPLASM MALIGNANT
  2. XGEVA [Suspect]
     Indication: METASTASES TO BONE

REACTIONS (2)
  - Hypocalcaemic seizure [Unknown]
  - Hypocalcaemia [Not Recovered/Not Resolved]
